FAERS Safety Report 11553249 (Version 1)
Quarter: 2015Q3

REPORT INFORMATION
  Report Type: Spontaneous
  Country: US (occurrence: None)
  Receive Date: 20150925
  Receipt Date: 20150925
  Transmission Date: 20151125
  Serious: Yes (Other)
  Sender: FDA-Public Use
  Company Number: US-MDT-ADR-2015-01848

PATIENT
  Age: 39 Year
  Sex: Female

DRUGS (2)
  1. MORPHINE INTRATHECAL 50 MG/ML [Suspect]
     Active Substance: MORPHINE
     Dosage: 14 MG/DAY
  2. BACLOFEN INTRATHECAL 400 MCG/ML [Suspect]
     Active Substance: BACLOFEN
     Indication: BACK PAIN
     Dosage: 112.05 MCG/DAY

REACTIONS (3)
  - Muscular weakness [None]
  - Infusion site mass [None]
  - Hypoaesthesia [None]
